FAERS Safety Report 21171700 (Version 1)
Quarter: 2022Q3

REPORT INFORMATION
  Report Type: Spontaneous
  Country: RU (occurrence: None)
  Receive Date: 20220804
  Receipt Date: 20220804
  Transmission Date: 20221027
  Serious: Yes (Life-Threatening)
  Sender: FDA-Public Use
  Company Number: 2022A274056

PATIENT
  Age: 55 Year
  Sex: Male
  Weight: 85 kg

DRUGS (3)
  1. IMFINZI [Suspect]
     Active Substance: DURVALUMAB
     Indication: Immunomodulatory therapy
     Dosage: 850 MG, FOR 1 DAY
     Route: 042
     Dates: start: 20220602
  2. CHLOROPYRAMINE [Concomitant]
     Active Substance: CHLOROPYRAMINE
     Indication: Premedication
     Dosage: 20 MG
     Route: 042
     Dates: start: 20220602
  3. DEXAMETHASONE [Concomitant]
     Active Substance: DEXAMETHASONE
     Indication: Premedication
     Dosage: 8 MG
     Route: 042
     Dates: start: 20220602

REACTIONS (8)
  - Oxygen saturation abnormal [Recovered/Resolved]
  - Anaphylactic reaction [Recovered/Resolved]
  - Dyspnoea [Recovered/Resolved]
  - Dyspnoea [Recovered/Resolved]
  - Livedo reticularis [Recovered/Resolved]
  - Cyanosis [Recovered/Resolved]
  - Rales [Recovered/Resolved]
  - Cough [Recovered/Resolved]

NARRATIVE: CASE EVENT DATE: 20220602
